FAERS Safety Report 8720744 (Version 2)
Quarter: 2015Q2

REPORT INFORMATION
  Report Type: Report from Study
  Country: US (occurrence: US)
  Receive Date: 20120813
  Receipt Date: 20150409
  Transmission Date: 20150821
  Serious: Yes (Other)
  Sender: FDA-Public Use
  Company Number: US-ROCHE-1099850

PATIENT
  Sex: Male

DRUGS (6)
  1. TYLENOL [Concomitant]
     Active Substance: ACETAMINOPHEN
     Route: 048
  2. TIGAN [Concomitant]
     Active Substance: TRIMETHOBENZAMIDE HYDROCHLORIDE
     Route: 065
  3. ASPIRIN. [Concomitant]
     Active Substance: ASPIRIN
     Route: 048
  4. NITROGLYCERIN. [Concomitant]
     Active Substance: NITROGLYCERIN
     Route: 042
  5. ACTIVASE [Suspect]
     Active Substance: ALTEPLASE
     Indication: MYOCARDIAL INFARCTION
     Route: 042
     Dates: start: 19890317
  6. HEPARIN [Concomitant]
     Active Substance: HEPARIN SODIUM

REACTIONS (14)
  - Bradycardia [Unknown]
  - Chest pain [Not Recovered/Not Resolved]
  - Chest pain [Unknown]
  - Dyspnoea [Unknown]
  - Headache [Unknown]
  - Musculoskeletal pain [Not Recovered/Not Resolved]
  - Ventricular arrhythmia [Unknown]
  - Dizziness [Unknown]
  - Pain in extremity [Unknown]
  - Stress [Unknown]
  - Blood pressure increased [Unknown]
  - Nausea [Unknown]
  - Hyperhidrosis [Unknown]
  - Restlessness [Unknown]
